FAERS Safety Report 9633522 (Version 1)
Quarter: 2013Q4

REPORT INFORMATION
  Report Type: Report from Study
  Country: MX (occurrence: MX)
  Receive Date: 20131021
  Receipt Date: 20131021
  Transmission Date: 20140711
  Serious: Yes (Death, Hospitalization)
  Sender: FDA-Public Use
  Company Number: PHHY2013MX117874

PATIENT
  Age: 93 Year
  Sex: Female

DRUGS (1)
  1. EXFORGE [Suspect]
     Indication: HYPERTENSION
     Dosage: 2 DF, DAILY (160 MG VALS AND 5 MG AMLO)
     Route: 048
     Dates: start: 20111129

REACTIONS (2)
  - Pleural effusion [Fatal]
  - Respiratory arrest [Fatal]
